FAERS Safety Report 23436453 (Version 2)
Quarter: 2024Q1

REPORT INFORMATION
  Report Type: Spontaneous
  Country: CZ (occurrence: CZ)
  Receive Date: 20240124
  Receipt Date: 20240205
  Transmission Date: 20240410
  Serious: No
  Sender: FDA-Public Use
  Company Number: CZ-002147023-NVSC2024CZ011106

PATIENT
  Age: 43 Year
  Sex: Female

DRUGS (4)
  1. ERENUMAB [Suspect]
     Active Substance: ERENUMAB
     Indication: Migraine
     Dosage: UNK
     Route: 065
     Dates: start: 2019
  2. RIMEGEPANT [Concomitant]
     Active Substance: RIMEGEPANT
     Indication: Headache
     Dosage: UNK
     Route: 065
     Dates: start: 202308
  3. RIMEGEPANT [Concomitant]
     Active Substance: RIMEGEPANT
     Indication: Photophobia
  4. RIMEGEPANT [Concomitant]
     Active Substance: RIMEGEPANT
     Indication: Nausea

REACTIONS (1)
  - Therapeutic response decreased [Recovered/Resolved]
